FAERS Safety Report 13123241 (Version 1)
Quarter: 2017Q1

REPORT INFORMATION
  Report Type: Spontaneous
  Country: CA (occurrence: CA)
  Receive Date: 20170117
  Receipt Date: 20170117
  Transmission Date: 20170428
  Serious: Yes (Other)
  Sender: FDA-Public Use
  Company Number: CA-PFIZER INC-2017015412

PATIENT

DRUGS (2)
  1. HYDROMORPHONE HYDROCHLORIDE. [Suspect]
     Active Substance: HYDROMORPHONE HYDROCHLORIDE
     Indication: PALLIATIVE CARE
     Dosage: UNK
  2. CAPTOPRIL. [Suspect]
     Active Substance: CAPTOPRIL
     Indication: PALLIATIVE CARE
     Dosage: UNK

REACTIONS (3)
  - Cognitive disorder [Unknown]
  - Coma [Unknown]
  - Renal failure [Unknown]
